FAERS Safety Report 15983344 (Version 1)
Quarter: 2019Q1

REPORT INFORMATION
  Report Type: Spontaneous
  Country: US (occurrence: US)
  Receive Date: 20190213
  Receipt Date: 20190213
  Transmission Date: 20190418
  Serious: Yes (Hospitalization)
  Sender: FDA-Public Use
  Company Number: None

PATIENT
  Age: 62 Year
  Sex: Male
  Weight: 78.74 kg

DRUGS (1)
  1. YESCARTA [Suspect]
     Active Substance: AXICABTAGENE CILOLEUCEL
     Indication: DIFFUSE LARGE B-CELL LYMPHOMA
     Dosage: 2 X 10^6 PER KG MAX 2X10^8 ONCE IV
     Dates: start: 20190114

REACTIONS (3)
  - Neurotoxicity [None]
  - Cardiorenal syndrome [None]
  - Liver function test abnormal [None]

NARRATIVE: CASE EVENT DATE: 20190114
